FAERS Safety Report 5392402-4 (Version None)
Quarter: 2007Q3

REPORT INFORMATION
  Report Type: 
  Country: None (occurrence: None)
  Receive Date: 20070720
  Receipt Date: 20070717
  Transmission Date: 20080115
  Serious: Yes (Disabling)
  Sender: FDA-Public Use
  Company Number: B0475403A

PATIENT
  Age: 45 Year
  Sex: Female
  Weight: 100 kg

DRUGS (2)
  1. LAMICTAL [Suspect]
     Dosage: 100MG TWICE PER DAY
     Route: 065
     Dates: start: 20060123, end: 20060613
  2. CYMBALTA [Concomitant]
     Indication: DEPRESSION
     Dosage: 120MG PER DAY
     Dates: start: 20070410

REACTIONS (3)
  - RETINAL PIGMENTATION [None]
  - VISION BLURRED [None]
  - VISUAL ACUITY REDUCED [None]
